FAERS Safety Report 8960163 (Version 1)
Quarter: 2012Q4

REPORT INFORMATION
  Report Type: 
  Country: BR (occurrence: BR)
  Receive Date: 20121212
  Receipt Date: 20121212
  Transmission Date: 20130627
  Serious: Yes (Other)
  Sender: FDA-Public Use
  Company Number: BR-PFIZER INC-2012309628

PATIENT
  Age: 59 Year
  Sex: Female

DRUGS (4)
  1. LIPITOR [Suspect]
     Indication: CHOLESTEROL
     Dosage: 40 mg, 1x/day
     Route: 048
     Dates: start: 20120807
  2. RENITEC [Concomitant]
     Indication: BLOOD PRESSURE
     Dosage: UNK, 2x/day
  3. PANTOZOL [Concomitant]
     Indication: PROPHYLAXIS
     Dosage: 40 mg, 1x/day
  4. SOMALGIN [Concomitant]
     Indication: ANTICOAGULANT THERAPY
     Dosage: UNK, 1x/day

REACTIONS (1)
  - Cardiac disorder [Unknown]
